FAERS Safety Report 10548686 (Version 2)
Quarter: 2014Q4

REPORT INFORMATION
  Report Type: Report from Study
  Country: US (occurrence: US)
  Receive Date: 20141028
  Receipt Date: 20141028
  Transmission Date: 20150529
  Serious: Yes (Hospitalization)
  Sender: FDA-Public Use
  Company Number: US-ACTELION-A-NJ2014-100262

PATIENT
  Age: 82 Year
  Sex: Female

DRUGS (13)
  1. METOPROLOL [Concomitant]
     Active Substance: METOPROLOL
  2. FUROSEMIDE. [Concomitant]
     Active Substance: FUROSEMIDE
  3. AMLODIPINE BESYLATE. [Concomitant]
     Active Substance: AMLODIPINE BESYLATE
  4. SODIUM BICARBONATE. [Concomitant]
     Active Substance: SODIUM BICARBONATE
  5. WARFARIN [Concomitant]
     Active Substance: WARFARIN
  6. ATORVASTATIN CALCIUM. [Concomitant]
     Active Substance: ATORVASTATIN CALCIUM
  7. VELETRI [Suspect]
     Active Substance: EPOPROSTENOL
     Dosage: 13.5 NG/KG, PER MIN
     Route: 042
     Dates: start: 20131121
  8. ALLOPURINOL. [Concomitant]
     Active Substance: ALLOPURINOL
  9. VELETRI [Suspect]
     Active Substance: EPOPROSTENOL
     Indication: PULMONARY ARTERIAL HYPERTENSION
     Dosage: 15 NG/KG, UNK
     Route: 042
  10. COLESTIPOL [Concomitant]
     Active Substance: COLESTIPOL
  11. IRON [Concomitant]
     Active Substance: IRON
  12. VITAMIN D [Concomitant]
     Active Substance: CHOLECALCIFEROL
  13. OMEPRAZOLE. [Concomitant]
     Active Substance: OMEPRAZOLE

REACTIONS (3)
  - Clostridium difficile colitis [Not Recovered/Not Resolved]
  - Diarrhoea [Unknown]
  - Dehydration [Not Recovered/Not Resolved]

NARRATIVE: CASE EVENT DATE: 20140522
